FAERS Safety Report 8399612-2 (Version None)
Quarter: 2012Q2

REPORT INFORMATION
  Report Type: 
  Country: None (occurrence: None)
  Receive Date: 20120531
  Receipt Date: 20120516
  Transmission Date: 20120825
  Serious: Yes (Life-Threatening, Hospitalization)
  Sender: FDA-Public Use
  Company Number: GB-WATSON-2012-09237

PATIENT
  Age: 50 Year
  Sex: Female

DRUGS (7)
  1. MEFENAMIC ACID [Suspect]
     Indication: PRODUCT USED FOR UNKNOWN INDICATION
     Dosage: UNKNOWN
     Route: 065
  2. QUETIAPINE [Suspect]
     Indication: PRODUCT USED FOR UNKNOWN INDICATION
     Dosage: 100 MG, UNKNOWN. DOSE AND FORM MODIFIED BY PSYCHIATRY  - NOW 700MG.
     Route: 065
  3. LITHIUM CARBONATE [Suspect]
     Indication: BIPOLAR DISORDER
     Dosage: UNKNOWN
     Route: 065
  4. CLOMIPRAMINE HCL [Suspect]
     Indication: PRODUCT USED FOR UNKNOWN INDICATION
     Dosage: UNKNOWN
     Route: 065
  5. OMEPRAZOLE [Concomitant]
     Indication: PRODUCT USED FOR UNKNOWN INDICATION
     Dosage: UNKNOWN
     Route: 065
  6. LEVOTHYROXINE SODIUM [Concomitant]
     Indication: PRODUCT USED FOR UNKNOWN INDICATION
     Dosage: UNKNOWN
     Route: 065
  7. BACLOFEN [Concomitant]
     Indication: PRODUCT USED FOR UNKNOWN INDICATION
     Dosage: 10 MG, UNKNOWN
     Route: 065

REACTIONS (13)
  - NEUROLEPTIC MALIGNANT SYNDROME [None]
  - NEPHROGENIC DIABETES INSIPIDUS [None]
  - MALAISE [None]
  - RHABDOMYOLYSIS [None]
  - URINE OUTPUT INCREASED [None]
  - URINE OSMOLARITY INCREASED [None]
  - PYREXIA [None]
  - TOXICITY TO VARIOUS AGENTS [None]
  - ACUTE PSYCHOSIS [None]
  - ENCEPHALITIS [None]
  - CONVULSION [None]
  - DYSTONIA [None]
  - RENAL FAILURE ACUTE [None]
